FAERS Safety Report 23822530 (Version 1)
Quarter: 2024Q2

REPORT INFORMATION
  Report Type: Spontaneous
  Country: BR (occurrence: BR)
  Receive Date: 20240506
  Receipt Date: 20240506
  Transmission Date: 20240716
  Serious: Yes (Hospitalization)
  Sender: FDA-Public Use
  Company Number: BR-GE HEALTHCARE-2024CSU004613

PATIENT
  Sex: Female

DRUGS (1)
  1. OMNISCAN [Suspect]
     Active Substance: GADODIAMIDE
     Indication: Magnetic resonance imaging
     Dosage: 10 ML, TOTAL
     Route: 065
     Dates: start: 20240313, end: 20240313

REACTIONS (3)
  - Syncope [Unknown]
  - Malaise [Unknown]
  - Somnolence [Unknown]

NARRATIVE: CASE EVENT DATE: 20240313
